FAERS Safety Report 11274843 (Version 1)
Quarter: 2015Q3

REPORT INFORMATION
  Report Type: Spontaneous
  Country: ES (occurrence: ES)
  Receive Date: 20150716
  Receipt Date: 20150716
  Transmission Date: 20151125
  Serious: Yes (Other)
  Sender: FDA-Public Use
  Company Number: ES-HOSPIRA-2938250

PATIENT
  Age: 78 Year
  Sex: Male

DRUGS (2)
  1. DOBUTAMINE HYDROCHLORIDE. [Suspect]
     Active Substance: DOBUTAMINE HYDROCHLORIDE
     Indication: STRESS ECHOCARDIOGRAM
     Dosage: 5 MCG/ KG/ MIN UP-TITRATED TO 40 MCG/ KG/ MIN AT 3 MINUTE INTERVAL
     Route: 041
  2. ESMOLOL [Suspect]
     Active Substance: ESMOLOL HYDROCHLORIDE
     Indication: SINUS TACHYCARDIA
     Route: 042

REACTIONS (1)
  - Arteriospasm coronary [Unknown]
